FAERS Safety Report 11442512 (Version 4)
Quarter: 2015Q4

REPORT INFORMATION
  Report Type: Report from Study
  Country: US (occurrence: None)
  Receive Date: 20150901
  Receipt Date: 20151016
  Transmission Date: 20160304
  Serious: Yes (Hospitalization)
  Sender: FDA-Public Use
  Company Number: US-MDT-ADR-2015-01668

PATIENT
  Age: 48 Year
  Sex: Male

DRUGS (1)
  1. COMPOUNDED BACLOFEN INTRATHECAL 1000 MCG/ML [Suspect]
     Active Substance: BACLOFEN
     Dosage: 350.1 MCG/DAY

REACTIONS (3)
  - Medical device site swelling [None]
  - Implant site extravasation [None]
  - Wound dehiscence [None]
